FAERS Safety Report 21350440 (Version 2)
Quarter: 2022Q3

REPORT INFORMATION
  Report Type: Spontaneous
  Country: GB (occurrence: GB)
  Receive Date: 20220919
  Receipt Date: 20220927
  Transmission Date: 20221027
  Serious: Yes (Other)
  Sender: FDA-Public Use
  Company Number: None

PATIENT

DRUGS (10)
  1. IBUPROFEN [Suspect]
     Active Substance: IBUPROFEN
     Indication: Ill-defined disorder
     Dosage: UNK
     Route: 065
     Dates: start: 20220908
  2. AMOXICILLIN [Concomitant]
     Active Substance: AMOXICILLIN
     Indication: Ill-defined disorder
     Dosage: 1 DF
     Route: 065
     Dates: start: 20220816, end: 20220824
  3. CLOTRIMAZOLE [Concomitant]
     Active Substance: CLOTRIMAZOLE
     Indication: Ill-defined disorder
     Dosage: 1 APPLICATION
     Route: 065
     Dates: start: 20220204, end: 20220907
  4. COAL TAR [Concomitant]
     Active Substance: COAL TAR
     Indication: Ill-defined disorder
     Dosage: 1 APPLICATION
     Route: 065
     Dates: start: 20210112, end: 20220907
  5. DIPROBASE [PARAFFIN, LIQUID;WHITE SOFT PARAFFIN] [Concomitant]
     Indication: Ill-defined disorder
     Dosage: 1 APPLICATION
     Route: 065
     Dates: start: 20211109, end: 20220907
  6. KETOCONAZOLE [Concomitant]
     Active Substance: KETOCONAZOLE
     Indication: Ill-defined disorder
     Dosage: 1 APPLICATION
     Route: 065
     Dates: start: 20211015, end: 20220907
  7. LORATADINE [Concomitant]
     Active Substance: LORATADINE
     Indication: Ill-defined disorder
     Dosage: 1 DF
     Route: 065
     Dates: start: 20220616, end: 20220907
  8. ACETAMINOPHEN [Concomitant]
     Active Substance: ACETAMINOPHEN
     Indication: Ill-defined disorder
     Dosage: 1-2 TABLET
     Route: 065
     Dates: start: 20211015, end: 20220907
  9. PREGABALIN [Concomitant]
     Active Substance: PREGABALIN
     Indication: Ill-defined disorder
     Dosage: 08:00-1 CAPSULES, 16:00-1 CAPSULES
     Route: 065
     Dates: start: 20220405
  10. TRAMADOL [Concomitant]
     Active Substance: TRAMADOL
     Indication: Ill-defined disorder
     Dosage: [08:00-1 TABLETS]
     Route: 065
     Dates: start: 20220405

REACTIONS (1)
  - Gastritis [Recovered/Resolved]

NARRATIVE: CASE EVENT DATE: 20220908
